FAERS Safety Report 14631882 (Version 1)
Quarter: 2018Q1

REPORT INFORMATION
  Report Type: Spontaneous
  Country: US (occurrence: US)
  Receive Date: 20180313
  Receipt Date: 20180313
  Transmission Date: 20180509
  Serious: No
  Sender: FDA-Public Use
  Company Number: US-009507513-1803USA005105

PATIENT
  Age: 22 Year
  Sex: Female
  Weight: 58.5 kg

DRUGS (1)
  1. NEXPLANON [Suspect]
     Active Substance: ETONOGESTREL
     Indication: CONTRACEPTION
     Dosage: 1 IMPLANT, FOR 3 YEARS, IMPLANT INSIDE THE LEFT ARM
     Route: 059
     Dates: start: 20170829

REACTIONS (2)
  - Menstruation delayed [Unknown]
  - Vaginal haemorrhage [Not Recovered/Not Resolved]
